FAERS Safety Report 5648825-9 (Version None)
Quarter: 2008Q1

REPORT INFORMATION
  Report Type: 
  Country: None (occurrence: None)
  Receive Date: 20080303
  Receipt Date: 20080303
  Transmission Date: 20080703
  Serious: No
  Sender: FDA-Public Use
  Company Number: None

PATIENT
  Age: 58 Year
  Sex: Female
  Weight: 76.2043 kg

DRUGS (2)
  1. ZICAM MATRIXX CORP. [Suspect]
     Indication: HEADACHE
     Dosage: 3 SPRAY/2SPRAY ONE TIME NASAL
     Route: 045
     Dates: start: 20080228, end: 20080228
  2. ZICAM MATRIXX CORP. [Suspect]
     Indication: NASOPHARYNGITIS
     Dosage: 3 SPRAY/2SPRAY ONE TIME NASAL
     Route: 045
     Dates: start: 20080228, end: 20080228

REACTIONS (6)
  - AGEUSIA [None]
  - ANOSMIA [None]
  - INCORRECT DOSE ADMINISTERED [None]
  - PARAESTHESIA [None]
  - RHINALGIA [None]
  - SNEEZING [None]
